FAERS Safety Report 5239680-X (Version None)
Quarter: 2007Q1

REPORT INFORMATION
  Report Type: 
  Country: None (occurrence: None)
  Receive Date: 20070212
  Receipt Date: 20070207
  Transmission Date: 20070707
  Serious: Yes (Hospitalization)
  Sender: FDA-Public Use
  Company Number: 2006SP006481

PATIENT
  Age: 48 Year
  Sex: Female

DRUGS (12)
  1. TEMOZOLOMIDE (S-P) (TEMOZOLOMIDE) [Suspect]
     Indication: GLIOMA
     Dosage: 120 MG; QD; PO
     Route: 048
     Dates: start: 20060411, end: 20061004
  2. FORECORTIN [Concomitant]
  3. COTRIM [Concomitant]
  4. DIAZEPAM [Concomitant]
  5. ANAGASTRA [Concomitant]
  6. VENTOLIN [Concomitant]
  7. ATROVENT [Concomitant]
  8. MICOSTATIN [Concomitant]
  9. FLUMIL [Concomitant]
  10. NEOSIDANTOINA [Concomitant]
  11. LORAZEPAM [Concomitant]
  12. LEXATIN [Concomitant]

REACTIONS (4)
  - DRUG EFFECT DECREASED [None]
  - HYPERSOMNIA [None]
  - RESPIRATORY FAILURE [None]
  - RESPIRATORY TRACT INFECTION [None]
